FAERS Safety Report 15326484 (Version 3)
Quarter: 2018Q3

REPORT INFORMATION
  Report Type: Spontaneous
  Country: US (occurrence: US)
  Receive Date: 20180828
  Receipt Date: 20180924
  Transmission Date: 20181010
  Serious: Yes (Hospitalization, Other)
  Sender: FDA-Public Use
  Company Number: US-SMITH AND NEPHEW, INC-2018SMT00122

PATIENT
  Sex: Female
  Weight: 70.3 kg

DRUGS (15)
  1. LISINOPRIL. [Concomitant]
     Active Substance: LISINOPRIL
     Dosage: 10 MG
  2. COLLAGENASE SANTYL [Suspect]
     Active Substance: COLLAGENASE CLOSTRIDIUM HISTOLYTICUM
     Indication: WOUND
     Route: 061
     Dates: start: 201805
  3. VITAMIN B12 [Concomitant]
     Active Substance: CYANOCOBALAMIN
     Dosage: 5000 U
  4. BIOTIN [Concomitant]
     Active Substance: BIOTIN
  5. KLOR?CON [Concomitant]
     Active Substance: POTASSIUM CHLORIDE
     Dosage: 20 MEQ
  6. ASPIRIN. [Concomitant]
     Active Substance: ASPIRIN
     Dosage: 81 MG
  7. COLLAGENASE SANTYL [Suspect]
     Active Substance: COLLAGENASE CLOSTRIDIUM HISTOLYTICUM
     Route: 061
     Dates: start: 201805
  8. COLLAGENASE SANTYL [Suspect]
     Active Substance: COLLAGENASE CLOSTRIDIUM HISTOLYTICUM
     Route: 061
     Dates: start: 201805
  9. LASIX [Concomitant]
     Active Substance: FUROSEMIDE
     Dosage: 20 MG
  10. IMDUR [Concomitant]
     Active Substance: ISOSORBIDE MONONITRATE
     Dosage: 30 MG
  11. BUDESONIDE. [Concomitant]
     Active Substance: BUDESONIDE
     Dosage: 3 MG
  12. CYMBALTA [Concomitant]
     Active Substance: DULOXETINE HYDROCHLORIDE
     Dosage: 120 MG
  13. NASONEX [Concomitant]
     Active Substance: MOMETASONE FUROATE
     Dosage: 1 DOSAGE UNITS
     Route: 045
  14. PLAVIX [Concomitant]
     Active Substance: CLOPIDOGREL BISULFATE
     Dosage: 75 MG
  15. GLUCOSAMINE/CHONDROITIN [Concomitant]
     Dosage: 1 TABLETS
     Route: 048

REACTIONS (7)
  - Skin exfoliation [Not Recovered/Not Resolved]
  - Poor peripheral circulation [Recovered/Resolved]
  - Drug ineffective [Recovering/Resolving]
  - Cardiac failure [Recovering/Resolving]
  - Ischaemic limb pain [Recovered/Resolved]
  - Arterial occlusive disease [Recovering/Resolving]
  - Peripheral ischaemia [Unknown]

NARRATIVE: CASE EVENT DATE: 2018
